FAERS Safety Report 10669863 (Version 2)
Quarter: 2015Q1

REPORT INFORMATION
  Report Type: Spontaneous
  Country: ES (occurrence: ES)
  Receive Date: 20141222
  Receipt Date: 20150114
  Transmission Date: 20150720
  Serious: Yes (Other)
  Sender: FDA-Public Use
  Company Number: ALCN2014ES007043

PATIENT

DRUGS (4)
  1. VIGAMOX [Suspect]
     Active Substance: MOXIFLOXACIN HYDROCHLORIDE
     Indication: TOXIC ANTERIOR SEGMENT SYNDROME
     Dosage: 1 DF, QH
     Route: 047
  2. VIGAMOX [Suspect]
     Active Substance: MOXIFLOXACIN HYDROCHLORIDE
     Dosage: 4 DF, ONCE/SINGLE
     Route: 031
  3. VANCOMYCIN [Concomitant]
     Active Substance: VANCOMYCIN
     Indication: TOXIC ANTERIOR SEGMENT SYNDROME
     Route: 047
  4. TOBREX [Concomitant]
     Active Substance: TOBRAMYCIN
     Indication: TOXIC ANTERIOR SEGMENT SYNDROME
     Dosage: UNK
     Route: 047

REACTIONS (5)
  - Condition aggravated [Recovered/Resolved with Sequelae]
  - Off label use [Recovered/Resolved with Sequelae]
  - Ulcerative keratitis [Recovered/Resolved with Sequelae]
  - Corneal thinning [Recovered/Resolved with Sequelae]
  - Corneal leukoma [Recovered/Resolved with Sequelae]
